FAERS Safety Report 8321881-5 (Version None)
Quarter: 2012Q2

REPORT INFORMATION
  Report Type: 
  Country: None (occurrence: None)
  Receive Date: 20120430
  Receipt Date: 20120424
  Transmission Date: 20120825
  Serious: Yes (Hospitalization)
  Sender: FDA-Public Use
  Company Number: JP-GLAXOSMITHKLINE-B0798926A

PATIENT
  Sex: Female

DRUGS (3)
  1. HYCAMTIN [Suspect]
     Indication: OVARIAN CANCER
     Route: 042
     Dates: start: 20120416, end: 20120420
  2. EPADEL [Concomitant]
     Route: 048
  3. OPALMON [Concomitant]
     Route: 048

REACTIONS (2)
  - HAEMORRHAGE SUBCUTANEOUS [None]
  - WHITE BLOOD CELL COUNT DECREASED [None]
